FAERS Safety Report 23996177 (Version 1)
Quarter: 2024Q2

REPORT INFORMATION
  Report Type: Spontaneous
  Country: EU (occurrence: EU)
  Receive Date: 20240620
  Receipt Date: 20240620
  Transmission Date: 20240716
  Serious: Yes (Other)
  Sender: FDA-Public Use
  Company Number: EU-IMP-2024000364

PATIENT

DRUGS (4)
  1. DEXAMETHASONE [Suspect]
     Active Substance: DEXAMETHASONE
     Indication: Macular oedema
     Route: 065
  2. METOPROLOL FUMARATE [Concomitant]
     Active Substance: METOPROLOL FUMARATE
     Indication: Product used for unknown indication
     Route: 065
  3. Amlodipine besilate,Perindopril [Concomitant]
     Indication: Product used for unknown indication
     Route: 065
  4. ASPIRIN [Concomitant]
     Active Substance: ASPIRIN
     Indication: Product used for unknown indication
     Route: 065

REACTIONS (2)
  - Unevaluable event [Unknown]
  - Cataract [Not Recovered/Not Resolved]
